FAERS Safety Report 15889850 (Version 2)
Quarter: 2019Q1

REPORT INFORMATION
  Report Type: Report from Study
  Country: PL (occurrence: PL)
  Receive Date: 20190130
  Receipt Date: 20190307
  Transmission Date: 20190417
  Serious: Yes (Hospitalization)
  Sender: FDA-Public Use
  Company Number: PL-REGENERON PHARMACEUTICALS, INC.-2019-13823

PATIENT

DRUGS (7)
  1. PEMETREXED. [Suspect]
     Active Substance: PEMETREXED
     Indication: NON-SMALL CELL LUNG CANCER METASTATIC
     Dosage: 500 MG/M2, DAY 1 EVERY 21 DAYS FOR 4 TO 6 CYCLES
     Route: 042
     Dates: start: 20180514, end: 20181121
  2. HEPA MERZ [Concomitant]
     Indication: ASPARTATE AMINOTRANSFERASE INCREASED
     Dosage: 3000 IU, BID
     Route: 048
     Dates: start: 20180604
  3. LYRICA [Concomitant]
     Active Substance: PREGABALIN
     Indication: POLYNEUROPATHY
     Dosage: 75 MG, BID
     Route: 048
     Dates: start: 20181121
  4. CEMIPLIMAB [Suspect]
     Active Substance: CEMIPLIMAB
     Indication: NON-SMALL CELL LUNG CANCER METASTATIC
     Dosage: 350 MG, Q3WEEKS
     Route: 042
     Dates: start: 20181211
  5. CISPLATIN. [Suspect]
     Active Substance: CISPLATIN
     Indication: NON-SMALL CELL LUNG CANCER METASTATIC
     Dosage: 75 MG/M2, DAY 1 EVERY 21 DAYS FOR 4 TO 6 CYCLES
     Route: 042
     Dates: start: 20180514, end: 20180827
  6. CLEXANE [Concomitant]
     Active Substance: ENOXAPARIN SODIUM
     Indication: THROMBOPHLEBITIS SUPERFICIAL
     Dosage: 0.8 ML, BID
     Route: 058
     Dates: start: 20180530
  7. DORETA [Concomitant]
     Active Substance: ACETAMINOPHEN\TRAMADOL HYDROCHLORIDE
     Indication: POLYNEUROPATHY
     Dosage: 1 DF, BID
     Route: 048
     Dates: start: 20181031

REACTIONS (1)
  - Pericardial effusion [Recovered/Resolved]

NARRATIVE: CASE EVENT DATE: 20190109
